FAERS Safety Report 23094225 (Version 1)
Quarter: 2023Q4

REPORT INFORMATION
  Report Type: Spontaneous
  Country: US (occurrence: US)
  Receive Date: 20231023
  Receipt Date: 20231023
  Transmission Date: 20240109
  Serious: Yes (Life-Threatening, Hospitalization, Other)
  Sender: FDA-Public Use
  Company Number: US-MACLEODS PHARMACEUTICALS US LTD-MAC2023043927

PATIENT

DRUGS (13)
  1. QUETIAPINE [Suspect]
     Active Substance: QUETIAPINE
     Indication: Withdrawal syndrome
     Dosage: UNK,CONTINUOUS (INJECTIONS)
     Route: 065
  2. HALOPERIDOL [Suspect]
     Active Substance: HALOPERIDOL
     Indication: Alcohol withdrawal syndrome
     Dosage: UNK
     Route: 065
  3. FENTANYL [Concomitant]
     Active Substance: FENTANYL\FENTANYL CITRATE
     Indication: Withdrawal syndrome
     Dosage: UNK,CONTINUOUS
     Route: 065
  4. FENTANYL [Concomitant]
     Active Substance: FENTANYL\FENTANYL CITRATE
     Indication: Alcohol withdrawal syndrome
  5. FENTANYL [Concomitant]
     Active Substance: FENTANYL\FENTANYL CITRATE
     Indication: Sedative therapy
  6. KETAMINE [Concomitant]
     Active Substance: KETAMINE
     Indication: Withdrawal syndrome
     Dosage: UNK, CONTINUOUS
     Route: 065
  7. KETAMINE [Concomitant]
     Active Substance: KETAMINE
     Indication: Sedative therapy
  8. KETAMINE [Concomitant]
     Active Substance: KETAMINE
     Indication: Alcohol withdrawal syndrome
  9. LORAZEPAM [Concomitant]
     Active Substance: LORAZEPAM
     Indication: Alcohol withdrawal syndrome
     Dosage: UNK UNK, PRN (AS NECESSARY)
     Route: 065
  10. MIDAZOLAM [Concomitant]
     Active Substance: MIDAZOLAM
     Indication: Withdrawal syndrome
     Dosage: UNK
     Route: 065
  11. MIDAZOLAM [Concomitant]
     Active Substance: MIDAZOLAM
     Indication: Alcohol withdrawal syndrome
  12. PROPOFOL [Concomitant]
     Active Substance: PROPOFOL
     Indication: Withdrawal syndrome
     Dosage: UNK (DAILY CONTINUOUS)
     Route: 065
  13. PROPOFOL [Concomitant]
     Active Substance: PROPOFOL
     Indication: Alcohol withdrawal syndrome

REACTIONS (1)
  - Hyperthermia [Unknown]
